FAERS Safety Report 6312620-8 (Version None)
Quarter: 2009Q3

REPORT INFORMATION
  Report Type: 
  Country: None (occurrence: None)
  Receive Date: 20090813
  Receipt Date: 20090803
  Transmission Date: 20100115
  Serious: Yes (Other)
  Sender: FDA-Public Use
  Company Number: 2008AL008838

PATIENT
  Age: 55 Year
  Sex: Male
  Weight: 107.9561 kg

DRUGS (15)
  1. DIGOXIN [Suspect]
     Indication: ATRIAL FIBRILLATION
     Dosage: 0.25MG, DAILY, PO
     Route: 048
     Dates: start: 20080101, end: 20080513
  2. NADOLOL [Concomitant]
  3. FUROSEMIDE (20MG) [Concomitant]
  4. JANTOVEN [Concomitant]
  5. LOVENOX [Concomitant]
  6. WARFARIN [Concomitant]
  7. CYCLOBENZAPR [Concomitant]
  8. ACETAMINOPHEN AND HYDROCODONE BITARTRATE [Concomitant]
  9. AMOXICILLIN [Concomitant]
  10. CEFDINIR [Concomitant]
  11. CLARITHROMYC [Concomitant]
  12. ALBUTEROL [Concomitant]
  13. ZYPREXA [Concomitant]
  14. POTASSIUM CHLORIDE [Concomitant]
  15. . [Concomitant]

REACTIONS (3)
  - CARDIAC MURMUR [None]
  - HEART RATE IRREGULAR [None]
  - INJURY [None]
